FAERS Safety Report 25336323 (Version 6)
Quarter: 2025Q3

REPORT INFORMATION
  Report Type: Spontaneous
  Country: GT (occurrence: GT)
  Receive Date: 20250520
  Receipt Date: 20250820
  Transmission Date: 20251020
  Serious: No
  Sender: PFIZER
  Company Number: GT-PFIZER INC-PV202500058000

PATIENT
  Age: 3 Year
  Sex: Female

DRUGS (1)
  1. GENOTROPIN [Suspect]
     Active Substance: SOMATROPIN
     Dosage: 0.6 MG, DAILY (AT NIGHT)

REACTIONS (3)
  - Device delivery system issue [Unknown]
  - Wrong technique in device usage process [Unknown]
  - Drug dose omission by device [Unknown]
